FAERS Safety Report 9892284 (Version 2)
Quarter: 2014Q1

REPORT INFORMATION
  Report Type: Spontaneous
  Country: US (occurrence: US)
  Receive Date: 20140212
  Receipt Date: 20140319
  Transmission Date: 20141002
  Serious: Yes (Other)
  Sender: FDA-Public Use
  Company Number: US-PFIZER INC-2014039622

PATIENT
  Sex: 0

DRUGS (2)
  1. MEDROL [Suspect]
     Dosage: UNK
  2. MEDROL [Suspect]
     Dosage: 3 MG, DAILY (2MG TABLET, A FULL TABLET IN THE MORNING, AND A HALF TABLET AT BEDTIME)

REACTIONS (2)
  - Polymyalgia rheumatica [Unknown]
  - Expired drug administered [Unknown]
